FAERS Safety Report 8736000 (Version 2)
Quarter: 2012Q4

REPORT INFORMATION
  Report Type: 
  Country: US (occurrence: US)
  Receive Date: 20120822
  Receipt Date: 20120926
  Transmission Date: 20130627
  Serious: Yes (Other)
  Sender: FDA-Public Use
  Company Number: US-PFIZER INC-2012204326

PATIENT
  Age: 51 Year
  Sex: Female
  Weight: 77.1 kg

DRUGS (21)
  1. HALCION [Suspect]
     Indication: SLEEP DISORDER
     Dosage: 0.25 mg, 1x/day
     Route: 048
     Dates: start: 2006
  2. CYMBALTA [Suspect]
     Indication: DEPRESSION
     Dosage: 60 mg, 2x/day
     Route: 048
     Dates: start: 2008, end: 201201
  3. CARAFATE [Concomitant]
     Dosage: UNK (two teaspoonful), 2x/day
  4. CREON 12000 [Concomitant]
     Dosage: 1 DF, 2x/day
  5. FUROSEMIDE [Concomitant]
     Dosage: 40 mg, 1x/day
  6. HYDROCODONE W/ACETAMINOPHEN [Concomitant]
     Dosage: 20/650 mg, 2x/day
  7. LEVOTHYROXINE [Concomitant]
     Dosage: 112 ug, 1x/day
  8. LISINOPRIL [Concomitant]
     Indication: HYPERTENSION
     Dosage: 20 mg, 2x/day
  9. METHOCARBAMOL [Concomitant]
     Dosage: 500 mg, 3x/day
  10. MORPHINE [Concomitant]
     Dosage: 30 mg, UNK
  11. NAPROXEN [Concomitant]
     Dosage: 500 mg, 2x/day
  12. NEXIUM [Concomitant]
     Dosage: 40 mg, 2x/day
  13. NUVIGIL [Concomitant]
     Dosage: 250 mg, 1x/day
  14. ONDANSETRON [Concomitant]
     Dosage: 8 mg, 2x/day
  15. TRIAZOLAM [Concomitant]
     Dosage: UNK, 2x/day
  16. ADVAIR [Concomitant]
     Dosage: 100/50 ug, 2x/day
  17. VENTORLIN [Concomitant]
     Dosage: 90 ug, as needed
  18. LYRICA [Concomitant]
     Indication: FIBROMYALGIA
     Dosage: UNK
     Dates: start: 2008
  19. XANAX [Concomitant]
     Indication: ANXIETY
     Dosage: 1 mg, 3x/day
  20. COPAXONE [Concomitant]
     Indication: MULTIPLE SCLEROSIS
     Dosage: UNK, 1x/day
  21. ZOLOFT [Concomitant]
     Indication: DEPRESSION
     Dosage: 50 mg, 1x/day
     Route: 048

REACTIONS (3)
  - Urinary tract infection [Unknown]
  - Blood potassium decreased [Unknown]
  - Weight decreased [Unknown]
